FAERS Safety Report 7442763-7 (Version None)
Quarter: 2011Q2

REPORT INFORMATION
  Report Type: 
  Country: None (occurrence: None)
  Receive Date: 20110419
  Receipt Date: 20110407
  Transmission Date: 20111010
  Serious: Yes (Hospitalization)
  Sender: FDA-Public Use
  Company Number: LEO-2011-00163

PATIENT
  Age: 41 Year
  Sex: Female
  Weight: 38.3 kg

DRUGS (5)
  1. INNOHEP [Suspect]
     Indication: EMBOLISM VENOUS
     Dosage: 8000 IU (8000 IU, 1 IN 1 D),SUBCUTANEOUS; 7000 IU (7000 IU,1 IN 1 D), SUBCUTANEOUS
     Route: 058
     Dates: start: 20100831, end: 20110121
  2. INNOHEP [Suspect]
     Indication: EMBOLISM VENOUS
     Dosage: 8000 IU (8000 IU, 1 IN 1 D),SUBCUTANEOUS; 7000 IU (7000 IU,1 IN 1 D), SUBCUTANEOUS
     Route: 058
     Dates: start: 20110122, end: 20110123
  3. RABEPRAZOLE (RABEPRAZOLE) [Concomitant]
  4. CPINK [Concomitant]
  5. PACKED RBCS (RED BLOOD CELLS, CONCENTRATED) [Concomitant]

REACTIONS (13)
  - ABDOMINAL PAIN [None]
  - DIZZINESS [None]
  - EROSIVE DUODENITIS [None]
  - DUODENAL ULCER [None]
  - BILIRUBIN CONJUGATED INCREASED [None]
  - GASTROINTESTINAL HAEMORRHAGE [None]
  - ASTHENIA [None]
  - HAEMATEMESIS [None]
  - GASTRITIS [None]
  - MELAENA [None]
  - VERTIGO [None]
  - PROTEIN TOTAL DECREASED [None]
  - HAEMOGLOBIN DECREASED [None]
